FAERS Safety Report 9774235 (Version 2)
Quarter: 2014Q1

REPORT INFORMATION
  Report Type: Spontaneous
  Country: DE (occurrence: DE)
  Receive Date: 20131220
  Receipt Date: 20140310
  Transmission Date: 20141002
  Serious: Yes (Life-Threatening, Hospitalization)
  Sender: FDA-Public Use
  Company Number: DE-JNJFOC-20131208348

PATIENT
  Age: 73 Year
  Sex: Male
  Weight: 65 kg

DRUGS (11)
  1. XARELTO [Suspect]
     Indication: CEREBROVASCULAR ACCIDENT PROPHYLAXIS
     Route: 048
     Dates: start: 201305
  2. XARELTO [Suspect]
     Indication: ATRIAL FIBRILLATION
     Route: 048
     Dates: start: 201305
  3. LEVOTHYROXINE  SODIUM [Concomitant]
     Route: 065
  4. METOPROLOL SUCCINATE [Concomitant]
     Route: 065
  5. PANTOPRAZOLE [Concomitant]
     Route: 065
  6. SERTRALINE [Concomitant]
     Route: 065
  7. SIMVAHEXAL [Concomitant]
     Route: 065
  8. SPIRIVA [Concomitant]
     Route: 065
  9. SPIRONOLACTON [Concomitant]
     Route: 065
  10. SYMBICORT TURBOHALER [Concomitant]
     Indication: CHRONIC OBSTRUCTIVE PULMONARY DISEASE
     Route: 065
  11. TORASEMID-1A PHARMA [Concomitant]
     Route: 065

REACTIONS (8)
  - Renal failure acute [Recovering/Resolving]
  - Haematemesis [Unknown]
  - Rhabdomyolysis [Recovering/Resolving]
  - Transaminases increased [Recovering/Resolving]
  - Melaena [Unknown]
  - Pruritus generalised [Recovering/Resolving]
  - Rash generalised [Recovering/Resolving]
  - Rash [Recovering/Resolving]
